FAERS Safety Report 4475303-5 (Version None)
Quarter: 2004Q4

REPORT INFORMATION
  Report Type: 
  Country: None (occurrence: None)
  Receive Date: 20041013
  Receipt Date: 20041013
  Transmission Date: 20050328
  Serious: Yes (Other)
  Sender: FDA-Public Use
  Company Number: None

PATIENT
  Sex: Female
  Weight: 96.6162 kg

DRUGS (6)
  1. DESMOPRESSIN ACETATE 0.01% BAUSCH AND LOMB PHARM [Suspect]
     Indication: DIABETES INSIPIDUS
     Dosage: 2 PUFF IN NOSE TID
     Route: 045
     Dates: start: 20020801
  2. DESMOPRESSIN ACETATE 0.01% BAUSCH AND LOMB PHARM [Suspect]
     Indication: DIABETES INSIPIDUS
     Dosage: 2 PUFF IN NOSE TID
     Route: 045
     Dates: start: 20040901
  3. GLUCOPHAGE [Concomitant]
  4. VIOXX [Concomitant]
  5. PREMPRO [Concomitant]
  6. TRAZODONE HCL [Concomitant]

REACTIONS (6)
  - EPISTAXIS [None]
  - HEADACHE [None]
  - PHARMACEUTICAL PRODUCT COMPLAINT [None]
  - POLYDIPSIA [None]
  - POLYURIA [None]
  - VOMITING [None]
